FAERS Safety Report 17733671 (Version 1)
Quarter: 2020Q2

REPORT INFORMATION
  Report Type: Spontaneous
  Country: DE (occurrence: DE)
  Receive Date: 20200501
  Receipt Date: 20200501
  Transmission Date: 20200714
  Serious: Yes (Other)
  Sender: FDA-Public Use
  Company Number: NVSC2020DE112216

PATIENT
  Sex: Female

DRUGS (2)
  1. SANDOSTATIN LAR DEPOT [Suspect]
     Active Substance: OCTREOTIDE ACETATE
     Indication: NEUROENDOCRINE TUMOUR
     Dosage: 30 MG, QMO
     Route: 065
  2. ACETYLSALICYLIC ACID [Concomitant]
     Active Substance: ASPIRIN
     Indication: MYOCARDIAL INFARCTION
     Dosage: UNK
     Route: 065

REACTIONS (10)
  - Depressed mood [Unknown]
  - Tinnitus [Unknown]
  - Diarrhoea [Unknown]
  - Injection site mass [Unknown]
  - Pancreatic disorder [Unknown]
  - Alopecia [Unknown]
  - Infarction [Unknown]
  - Type 1 diabetes mellitus [Unknown]
  - Liver disorder [Unknown]
  - Bone pain [Unknown]
